FAERS Safety Report 5932742-0 (Version None)
Quarter: 2008Q4

REPORT INFORMATION
  Report Type: 
  Country: None (occurrence: None)
  Receive Date: 20081023
  Receipt Date: 20081013
  Transmission Date: 20090506
  Serious: Yes (Hospitalization, Other)
  Sender: FDA-Public Use
  Company Number: JHP200800299

PATIENT
  Age: 18 Year
  Sex: Female

DRUGS (1)
  1. KETALAR [Suspect]
     Indication: DRUG ABUSE
     Route: 042

REACTIONS (2)
  - CYSTITIS ULCERATIVE [None]
  - URINARY INCONTINENCE [None]
